FAERS Safety Report 5099606-9 (Version None)
Quarter: 2006Q3

REPORT INFORMATION
  Report Type: 
  Country: None (occurrence: None)
  Receive Date: 20060906
  Receipt Date: 20060829
  Transmission Date: 20061208
  Serious: Yes (Other)
  Sender: FDA-Public Use
  Company Number: 2006US-03525

PATIENT
  Sex: Male

DRUGS (4)
  1. CEFADROXIL [Suspect]
     Dosage: 500 MG, BID, ORAL
     Route: 048
     Dates: start: 20051013, end: 20051013
  2. ZOCOR [Concomitant]
  3. PREVACID [Concomitant]
  4. ASPIRIN [Concomitant]

REACTIONS (4)
  - DYSPHAGIA [None]
  - MASS [None]
  - MOUTH ULCERATION [None]
  - PHARYNGOLARYNGEAL PAIN [None]
